FAERS Safety Report 5400230-6 (Version None)
Quarter: 2007Q3

REPORT INFORMATION
  Report Type: 
  Country: None (occurrence: None)
  Receive Date: 20070727
  Receipt Date: 20070727
  Transmission Date: 20080115
  Serious: Yes (Hospitalization, Other)
  Sender: FDA-Public Use
  Company Number: None

PATIENT
  Sex: Female

DRUGS (3)
  1. REVLIMID [Suspect]
     Indication: MULTIPLE MYELOMA
     Dosage: 25MG DAILY X21D/28D PO
     Route: 048
     Dates: start: 20061221, end: 20070103
  2. PROCRIT [Concomitant]
  3. VICODIN [Concomitant]

REACTIONS (4)
  - EPISTAXIS [None]
  - INTESTINAL OBSTRUCTION [None]
  - RENAL FAILURE ACUTE [None]
  - THROMBOCYTOPENIA [None]
